FAERS Safety Report 15670297 (Version 1)
Quarter: 2018Q4

REPORT INFORMATION
  Report Type: Spontaneous
  Country: US (occurrence: US)
  Receive Date: 20181129
  Receipt Date: 20181129
  Transmission Date: 20190205
  Serious: Yes (Death, Life-Threatening, Hospitalization)
  Sender: FDA-Public Use
  Company Number: US-TEVA-2018-US-980535

PATIENT
  Age: 14 Year
  Sex: Male

DRUGS (2)
  1. ENTECAVIR. [Suspect]
     Active Substance: ENTECAVIR
     Route: 065
  2. TACROLIMUS. [Suspect]
     Active Substance: TACROLIMUS
     Indication: IMMUNOSUPPRESSANT DRUG THERAPY
     Route: 065

REACTIONS (14)
  - Autoimmune haemolytic anaemia [Unknown]
  - Status epilepticus [Unknown]
  - Hypotension [Unknown]
  - Multiple organ dysfunction syndrome [Unknown]
  - Encephalopathy [Unknown]
  - Toxicity to various agents [Fatal]
  - Ventricular fibrillation [Recovering/Resolving]
  - Sinus tachycardia [Unknown]
  - Coagulopathy [Unknown]
  - Haemophagocytic lymphohistiocytosis [Fatal]
  - Metabolic acidosis [Unknown]
  - Renal tubular injury [Unknown]
  - Mental status changes [Unknown]
  - Anuria [Unknown]
